FAERS Safety Report 16858308 (Version 8)
Quarter: 2025Q3

REPORT INFORMATION
  Report Type: Report from Study
  Country: CA (occurrence: CA)
  Receive Date: 20190926
  Receipt Date: 20250728
  Transmission Date: 20251021
  Serious: Yes (Hospitalization, Other)
  Sender: TAKEDA
  Company Number: CA-SHIRE-CA201900834AA

PATIENT
  Sex: Male
  Weight: 113 kg

DRUGS (46)
  1. HUMAN IMMUNOGLOBULIN G [Suspect]
     Active Substance: HUMAN IMMUNOGLOBULIN G
     Indication: Primary immunodeficiency syndrome
     Dosage: 16 GRAM, 1/WEEK
     Dates: start: 20180615
  2. HUMAN IMMUNOGLOBULIN G [Suspect]
     Active Substance: HUMAN IMMUNOGLOBULIN G
     Indication: Myasthenia gravis
     Dosage: 16 GRAM, 1/WEEK
     Dates: start: 20181109
  3. HUMAN IMMUNOGLOBULIN G [Suspect]
     Active Substance: HUMAN IMMUNOGLOBULIN G
     Dosage: 16 GRAM, 1/WEEK
  4. HUMAN IMMUNOGLOBULIN G [Suspect]
     Active Substance: HUMAN IMMUNOGLOBULIN G
     Dosage: 16 GRAM, 1/WEEK
  5. HYQVIA [Suspect]
     Active Substance: HUMAN IMMUNOGLOBULIN G\HYALURONIDASE (HUMAN RECOMBINANT)
     Indication: Primary immunodeficiency syndrome
     Dosage: 65 GRAM, Q4WEEKS
     Dates: start: 20240621
  6. HYQVIA [Suspect]
     Active Substance: HUMAN IMMUNOGLOBULIN G\HYALURONIDASE (HUMAN RECOMBINANT)
     Dosage: 65 GRAM, Q4WEEKS
  7. HYQVIA [Suspect]
     Active Substance: HUMAN IMMUNOGLOBULIN G\HYALURONIDASE (HUMAN RECOMBINANT)
     Dosage: 65 GRAM, Q4WEEKS
  8. HYQVIA [Suspect]
     Active Substance: HUMAN IMMUNOGLOBULIN G\HYALURONIDASE (HUMAN RECOMBINANT)
     Dosage: UNK UNK, Q4WEEKS
  9. HYQVIA [Suspect]
     Active Substance: HUMAN IMMUNOGLOBULIN G\HYALURONIDASE (HUMAN RECOMBINANT)
     Dosage: UNK UNK, Q4WEEKS
  10. HYQVIA [Suspect]
     Active Substance: HUMAN IMMUNOGLOBULIN G\HYALURONIDASE (HUMAN RECOMBINANT)
     Dosage: 65 GRAM, Q4WEEKS
  11. HYQVIA [Suspect]
     Active Substance: HUMAN IMMUNOGLOBULIN G\HYALURONIDASE (HUMAN RECOMBINANT)
     Dosage: 65 GRAM, Q4WEEKS
  12. HYQVIA [Suspect]
     Active Substance: HUMAN IMMUNOGLOBULIN G\HYALURONIDASE (HUMAN RECOMBINANT)
     Dosage: 65 GRAM, Q4WEEKS
     Dates: end: 20250512
  13. MESTINON [Concomitant]
     Active Substance: PYRIDOSTIGMINE BROMIDE
     Indication: Product used for unknown indication
  14. PREDNISONE [Concomitant]
     Active Substance: PREDNISONE
     Indication: Product used for unknown indication
  15. ESCITALOPRAM [Concomitant]
     Active Substance: ESCITALOPRAM OXALATE
     Indication: Product used for unknown indication
  16. PANTOPRAZOLE [Concomitant]
     Active Substance: PANTOPRAZOLE
     Indication: Product used for unknown indication
  17. LISINOPRIL [Concomitant]
     Active Substance: LISINOPRIL
     Indication: Product used for unknown indication
  18. VITAMIN B12 [Concomitant]
     Active Substance: CYANOCOBALAMIN
     Indication: Product used for unknown indication
  19. METOPROLOL [Concomitant]
     Active Substance: METOPROLOL
     Indication: Product used for unknown indication
  20. ASPIRIN [Concomitant]
     Active Substance: ASPIRIN
     Indication: Product used for unknown indication
  21. ALBUTEROL [Concomitant]
     Active Substance: ALBUTEROL
     Indication: Product used for unknown indication
  22. ENBREL [Concomitant]
     Active Substance: ETANERCEPT
     Indication: Product used for unknown indication
  23. RITUXAN [Concomitant]
     Active Substance: RITUXIMAB
     Indication: Product used for unknown indication
  24. ATORVASTATIN [Concomitant]
     Active Substance: ATORVASTATIN
     Indication: Product used for unknown indication
  25. VITAMIN D [Concomitant]
     Active Substance: VITAMIN D NOS
     Indication: Product used for unknown indication
  26. ALENDRONATE [Concomitant]
     Active Substance: ALENDRONATE SODIUM
     Indication: Product used for unknown indication
  27. SODIUM GLUCONATE [Concomitant]
     Active Substance: SODIUM GLUCONATE
     Indication: Product used for unknown indication
  28. CICLOPIROX OLAMINE [Concomitant]
     Active Substance: CICLOPIROX OLAMINE
  29. BETNOVATE [Concomitant]
     Active Substance: BETAMETHASONE
  30. TRESIBA [Concomitant]
     Active Substance: INSULIN DEGLUDEC
  31. JARDIANCE [Concomitant]
     Active Substance: EMPAGLIFLOZIN
  32. JANUVIA [Concomitant]
     Active Substance: SITAGLIPTIN PHOSPHATE
  33. PERINDOPRIL [Concomitant]
     Active Substance: PERINDOPRIL
  34. CELEXA [Concomitant]
     Active Substance: CITALOPRAM HYDROBROMIDE
  35. VITAMIN D3 [Concomitant]
     Active Substance: CHOLECALCIFEROL
  36. LYRICA [Concomitant]
     Active Substance: PREGABALIN
  37. PRAMIPEXOLE [Concomitant]
     Active Substance: PRAMIPEXOLE
  38. FLOMAX [Concomitant]
     Active Substance: TAMSULOSIN HYDROCHLORIDE
  39. BILASTINE [Concomitant]
     Active Substance: BILASTINE
  40. DIETARY SUPPLEMENT\HERBALS\MILK THISTLE [Concomitant]
     Active Substance: MILK THISTLE
  41. LORAZEPAM [Concomitant]
     Active Substance: LORAZEPAM
  42. ONDANSETRON [Concomitant]
     Active Substance: ONDANSETRON
  43. SINGULAIR [Concomitant]
     Active Substance: MONTELUKAST SODIUM
  44. CRESTOR [Concomitant]
     Active Substance: ROSUVASTATIN CALCIUM
  45. CELEBREX [Concomitant]
     Active Substance: CELECOXIB
  46. PROTOPIC [Concomitant]
     Active Substance: TACROLIMUS

REACTIONS (10)
  - Diabetic gastroparesis [Unknown]
  - Type 1 diabetes mellitus [Not Recovered/Not Resolved]
  - Tendon injury [Unknown]
  - Scar [Not Recovered/Not Resolved]
  - Intentional product use issue [Unknown]
  - Incorrect drug administration rate [Unknown]
  - Inappropriate schedule of product administration [Unknown]
  - Infusion site erythema [Unknown]
  - Injection site erythema [Recovered/Resolved]
  - Fatigue [Unknown]
